FAERS Safety Report 22661480 (Version 1)
Quarter: 2023Q2

REPORT INFORMATION
  Report Type: Spontaneous
  Country: KR (occurrence: KR)
  Receive Date: 20230630
  Receipt Date: 20230630
  Transmission Date: 20230721
  Serious: Yes (Hospitalization, Disabling, Other)
  Sender: FDA-Public Use
  Company Number: KR-MYLANLABS-2023M1067927

PATIENT

DRUGS (1)
  1. CELEBREX [Suspect]
     Active Substance: CELECOXIB
     Indication: Product used for unknown indication
     Dosage: 200 MILLIGRAM
     Route: 065

REACTIONS (5)
  - Cardiomegaly [Unknown]
  - Chronic kidney disease [Unknown]
  - Pulmonary embolism [Unknown]
  - Atrial tachycardia [Unknown]
  - Cardiac failure [Unknown]
